FAERS Safety Report 10595599 (Version 2)
Quarter: 2014Q4

REPORT INFORMATION
  Report Type: Spontaneous
  Country: BR (occurrence: BR)
  Receive Date: 20141120
  Receipt Date: 20141201
  Transmission Date: 20150529
  Serious: Yes (Other)
  Sender: FDA-Public Use
  Company Number: BR-SA-2014SA158096

PATIENT
  Age: 77 Year
  Sex: Female
  Weight: 62 kg

DRUGS (6)
  1. STILNOX [Suspect]
     Active Substance: ZOLPIDEM TARTRATE
     Indication: SLEEP DISORDER
     Dosage: TAKEN FROM- 2-3 YEARS AGO?HALF TABLET
     Route: 048
  2. XARELTO [Suspect]
     Active Substance: RIVAROXABAN
     Indication: COAGULOPATHY
     Route: 048
  3. ANCORON [Concomitant]
     Active Substance: AMIODARONE HYDROCHLORIDE
     Indication: CARDIAC DISORDER
     Dosage: 1 TABLET IN ALTERNATE DAYS
     Route: 048
     Dates: start: 2011
  4. CERVUSEN ARTHRITIS + RHEUMATISM [Concomitant]
     Indication: RHEUMATIC DISORDER
     Dosage: 1 TABLET PER DAY
     Route: 048
     Dates: start: 2011
  5. XARELTO [Suspect]
     Active Substance: RIVAROXABAN
     Indication: COAGULOPATHY
     Route: 048
     Dates: start: 201302
  6. SYNTHROID [Concomitant]
     Active Substance: LEVOTHYROXINE SODIUM
     Indication: HYPOTHYROIDISM
     Dosage: 1 TABLET IN THE MORNING ON EMPTY STOMACH, TAKEN TO IT WAS UP TO THE REST OF THE LIFE
     Route: 048
     Dates: start: 2009

REACTIONS (2)
  - Haematuria [Recovered/Resolved]
  - Drug administration error [Unknown]
